FAERS Safety Report 17361387 (Version 1)
Quarter: 2020Q1

REPORT INFORMATION
  Report Type: Spontaneous
  Country: US (occurrence: US)
  Receive Date: 20200203
  Receipt Date: 20200203
  Transmission Date: 20200409
  Serious: No
  Sender: FDA-Public Use
  Company Number: US-PFIZER INC-2020040575

PATIENT
  Sex: Female

DRUGS (2)
  1. DAURISMO [Suspect]
     Active Substance: GLASDEGIB
     Dosage: UNK
  2. CYTARABINE. [Suspect]
     Active Substance: CYTARABINE
     Dosage: UNK

REACTIONS (1)
  - Decreased appetite [Unknown]
